FAERS Safety Report 6516015-3 (Version None)
Quarter: 2009Q4

REPORT INFORMATION
  Report Type: 
  Country: None (occurrence: None)
  Receive Date: 20091223
  Receipt Date: 20091002
  Transmission Date: 20100525
  Serious: No
  Sender: FDA-Public Use
  Company Number: US-ABBOTT-09P-163-0601125-00

PATIENT
  Sex: Male
  Weight: 82.628 kg

DRUGS (2)
  1. LUPRON DEPOT [Suspect]
     Indication: PROSTATE CANCER
     Dates: start: 20000101, end: 20090201
  2. UNKNOWN MEDICATIONS [Concomitant]
     Indication: DRUG USE FOR UNKNOWN INDICATION

REACTIONS (6)
  - AMNESIA [None]
  - BLOOD TESTOSTERONE ABNORMAL [None]
  - HOT FLUSH [None]
  - INTERVERTEBRAL DISC DEGENERATION [None]
  - MUSCLE ATROPHY [None]
  - OSTEOARTHRITIS [None]
